FAERS Safety Report 7075633-7 (Version None)
Quarter: 2010Q4

REPORT INFORMATION
  Report Type: 
  Country: None (occurrence: None)
  Receive Date: 20101030
  Receipt Date: 20101009
  Transmission Date: 20110411
  Serious: No
  Sender: FDA-Public Use
  Company Number: US-WYE-H18103210

PATIENT
  Sex: Male

DRUGS (6)
  1. EFFEXOR [Suspect]
     Indication: DEPRESSION
     Dosage: DOSAGE OF VENLAFAXINE WAS BEING DECREASED, AFTER BEING ON 75 MG DAILY FOR LESS THAN A YEAR
     Route: 048
     Dates: end: 20101009
  2. CELEXA [Concomitant]
  3. PRILOSEC [Concomitant]
  4. KLONOPIN [Concomitant]
  5. PRISTIQ [Suspect]
     Indication: DEPRESSION
     Route: 048
     Dates: start: 20101002
  6. REGLAN [Concomitant]

REACTIONS (4)
  - COORDINATION ABNORMAL [None]
  - DRUG WITHDRAWAL SYNDROME [None]
  - FALL [None]
  - SOMNOLENCE [None]
